FAERS Safety Report 6717535-9 (Version None)
Quarter: 2010Q2

REPORT INFORMATION
  Report Type: 
  Country: None (occurrence: None)
  Receive Date: 20100507
  Receipt Date: 20100507
  Transmission Date: 20101027
  Serious: Yes (Hospitalization)
  Sender: FDA-Public Use
  Company Number: None

PATIENT
  Age: 34 Year
  Sex: Male
  Weight: 107.5025 kg

DRUGS (18)
  1. BYETTA [Suspect]
     Indication: TYPE 2 DIABETES MELLITUS
     Dosage: 10MCG -1 INJECTION - TWICE DAILY SQ
     Route: 058
     Dates: start: 20090306, end: 20100226
  2. SHAMPOO [Concomitant]
  3. CLOBETASOL 0.05% SHAMPOO [Concomitant]
  4. KETOCONAZOLE [Concomitant]
  5. SALEX 6% CREAM [Concomitant]
  6. TRIMACINOLONE 0.1% OINTMENT [Concomitant]
  7. PROCHLORPERAZINE 10MG [Concomitant]
  8. GLIPIZIDE [Concomitant]
  9. DOVONEX 0.005% CREAM [Concomitant]
  10. PROAIR HFA [Concomitant]
  11. ZYRTEC [Concomitant]
  12. PATANOL [Concomitant]
  13. BYETTA [Concomitant]
  14. LANTUS [Concomitant]
  15. ASPIRIN [Concomitant]
  16. METFORMIN HCL [Concomitant]
  17. SALEX 6% LOTION [Concomitant]
  18. KETOCONAZOLE [Concomitant]

REACTIONS (1)
  - PANCREATITIS ACUTE [None]
